FAERS Safety Report 11156536 (Version 1)
Quarter: 2015Q2

REPORT INFORMATION
  Report Type: Spontaneous
  Country: PL (occurrence: PL)
  Receive Date: 20150602
  Receipt Date: 20150602
  Transmission Date: 20150821
  Serious: Yes (Life-Threatening)
  Sender: FDA-Public Use
  Company Number: PL-TEVA-566795ISR

PATIENT
  Age: 59 Year
  Sex: Female
  Weight: 70 kg

DRUGS (4)
  1. CLEMASTIN [Concomitant]
     Active Substance: CLEMASTINE
     Route: 042
     Dates: start: 20130923
  2. ZOFRAN [Concomitant]
     Active Substance: ONDANSETRON HYDROCHLORIDE
     Route: 042
     Dates: start: 20130923, end: 20130923
  3. OXALIPLATIN. [Suspect]
     Active Substance: OXALIPLATIN
     Indication: COLON CANCER
     Route: 042
     Dates: start: 20130923, end: 20130923
  4. HYDROCORTISON [Concomitant]
     Active Substance: HYDROCORTISONE
     Route: 042
     Dates: start: 20130923, end: 20130923

REACTIONS (9)
  - Blister [Recovering/Resolving]
  - Laryngeal oedema [Recovering/Resolving]
  - Oedema peripheral [Recovering/Resolving]
  - Administration site pain [Recovering/Resolving]
  - Tongue oedema [Recovering/Resolving]
  - Erythema [Recovering/Resolving]
  - Abdominal pain upper [Recovering/Resolving]
  - Pruritus [Recovering/Resolving]
  - Vomiting [Recovering/Resolving]

NARRATIVE: CASE EVENT DATE: 20130923
